FAERS Safety Report 6592082-6 (Version None)
Quarter: 2010Q1

REPORT INFORMATION
  Report Type: 
  Country: None (occurrence: None)
  Receive Date: 20100221
  Receipt Date: 20090826
  Transmission Date: 20100710
  Serious: Yes (Other)
  Sender: FDA-Public Use
  Company Number: US-ALLERGAN-0911911US

PATIENT
  Age: 63 Year
  Sex: Female
  Weight: 46.259 kg

DRUGS (1)
  1. BOTOX COSMETIC [Suspect]
     Indication: SKIN WRINKLING
     Dosage: 32 UNITS, SINGLE
     Route: 030

REACTIONS (1)
  - DYSPHAGIA [None]
